FAERS Safety Report 11394587 (Version 1)
Quarter: 2015Q3

REPORT INFORMATION
  Report Type: Spontaneous
  Country: US (occurrence: None)
  Receive Date: 20150817
  Receipt Date: 20150817
  Transmission Date: 20151125
  Serious: Yes (Disabling)
  Sender: FDA-Public Use
  Company Number: None

PATIENT
  Age: 76 Year
  Sex: Male
  Weight: 98.43 kg

DRUGS (9)
  1. PROPRANOLOL [Concomitant]
     Active Substance: PROPRANOLOL\PROPRANOLOL HYDROCHLORIDE
  2. FLECAINIDE [Suspect]
     Active Substance: FLECAINIDE
     Indication: PROPHYLAXIS
     Dosage: TAKEN BY MOUTH
     Dates: start: 20150803, end: 20150808
  3. FLACACIDE [Concomitant]
  4. MULTI-VIT [Concomitant]
     Active Substance: VITAMINS
  5. FLECAINIDE [Suspect]
     Active Substance: FLECAINIDE
     Indication: ATRIAL FIBRILLATION
     Dosage: TAKEN BY MOUTH
     Dates: start: 20150803, end: 20150808
  6. EYE HEALTH SUPPLEMEMT [Concomitant]
  7. OMEGA 3 [Concomitant]
     Active Substance: OMEGA-3 FATTY ACIDS
  8. LISINOPRIL. [Concomitant]
     Active Substance: LISINOPRIL
  9. GLUCOSAMINE-CONDROITIN [Concomitant]

REACTIONS (3)
  - Arrhythmia [None]
  - Heart rate increased [None]
  - Condition aggravated [None]

NARRATIVE: CASE EVENT DATE: 20150808
